FAERS Safety Report 7790898-1 (Version None)
Quarter: 2011Q3

REPORT INFORMATION
  Report Type: 
  Country: None (occurrence: None)
  Receive Date: 20110930
  Receipt Date: 20110921
  Transmission Date: 20111222
  Serious: Yes (Other)
  Sender: FDA-Public Use
  Company Number: US-ASTRAZENECA-2011SE56618

PATIENT
  Age: 91 Year
  Sex: Female

DRUGS (3)
  1. SALT PILLS [Concomitant]
  2. PLAVIX [Concomitant]
  3. ATACAND [Suspect]
     Route: 048

REACTIONS (10)
  - MICROANGIOPATHY [None]
  - LETHARGY [None]
  - ARTERIAL OCCLUSIVE DISEASE [None]
  - MENTAL STATUS CHANGES [None]
  - MEMORY IMPAIRMENT [None]
  - FALL [None]
  - HYPERTENSION [None]
  - HYPONATRAEMIA [None]
  - MIDDLE INSOMNIA [None]
  - FATIGUE [None]
